FAERS Safety Report 5602874-5 (Version None)
Quarter: 2008Q1

REPORT INFORMATION
  Report Type: 
  Country: None (occurrence: None)
  Receive Date: 20080111
  Receipt Date: 20070810
  Transmission Date: 20080703
  Serious: Yes (Hospitalization, Other)
  Sender: FDA-Public Use
  Company Number: HQWYE499328JUL04

PATIENT
  Age: 55 Year
  Sex: Female
  Weight: 103.06 kg

DRUGS (1)
  1. PREMPRO [Suspect]

REACTIONS (1)
  - DEEP VEIN THROMBOSIS [None]
